FAERS Safety Report 5959427-9 (Version None)
Quarter: 2008Q4

REPORT INFORMATION
  Report Type: 
  Country: None (occurrence: None)
  Receive Date: 20081120
  Receipt Date: 20080929
  Transmission Date: 20090506
  Serious: No
  Sender: FDA-Public Use
  Company Number: A0749612A

PATIENT
  Age: 61 Year
  Sex: Female

DRUGS (3)
  1. VERAMYST [Suspect]
     Indication: SINUS CONGESTION
     Dosage: 1SPR TWICE PER DAY
     Route: 045
     Dates: start: 20080101
  2. ESTROGENIC SUBSTANCE [Concomitant]
  3. ANTIHISTAMINE [Concomitant]

REACTIONS (6)
  - DIZZINESS [None]
  - HEADACHE [None]
  - MULTIPLE ALLERGIES [None]
  - SINUS DISORDER [None]
  - SINUS HEADACHE [None]
  - TOOTH INFECTION [None]
